FAERS Safety Report 9498662 (Version 1)
Quarter: 2013Q3

REPORT INFORMATION
  Report Type: Spontaneous
  Country: US (occurrence: US)
  Receive Date: 20130904
  Receipt Date: 20130904
  Transmission Date: 20140515
  Serious: No
  Sender: FDA-Public Use
  Company Number: US-PFIZER INC-2013252956

PATIENT
  Age: 19 Year
  Sex: Female
  Weight: 63.49 kg

DRUGS (1)
  1. ADVIL [Suspect]
     Indication: HEADACHE
     Dosage: 200 MG, ONCE
     Dates: start: 20130901, end: 20130901

REACTIONS (3)
  - Expired drug administered [Unknown]
  - Presyncope [Recovering/Resolving]
  - Tremor [Recovering/Resolving]
